FAERS Safety Report 19663098 (Version 1)
Quarter: 2021Q3

REPORT INFORMATION
  Report Type: Report from Study
  Country: US (occurrence: US)
  Receive Date: 20210805
  Receipt Date: 20210805
  Transmission Date: 20211014
  Serious: Yes (Hospitalization, Other)
  Sender: FDA-Public Use
  Company Number: US-TAKEDA-2021TUS047713

PATIENT
  Age: 5 Year
  Sex: Male

DRUGS (8)
  1. TEDUGLUTIDE [Suspect]
     Active Substance: TEDUGLUTIDE
     Indication: SHORT-BOWEL SYNDROME
     Dosage: 0.600 MILLIGRAM, QD
     Route: 065
     Dates: start: 20210216
  2. TEDUGLUTIDE [Suspect]
     Active Substance: TEDUGLUTIDE
     Indication: SHORT-BOWEL SYNDROME
     Dosage: 0.600 MILLIGRAM, QD
     Route: 065
     Dates: start: 20210216
  3. ERYTHROMYCIN. [Concomitant]
     Active Substance: ERYTHROMYCIN
     Dosage: 40 MILLIGRAM
     Route: 065
     Dates: start: 20210420
  4. ALCOHOL. [Concomitant]
     Active Substance: ALCOHOL
     Dosage: 0.20 MILLILITER, QD
     Route: 042
     Dates: start: 20210420
  5. ZINC OXIDE. [Concomitant]
     Active Substance: ZINC OXIDE
     Dosage: 202021 UNK
     Route: 061
     Dates: start: 20210420
  6. TEDUGLUTIDE [Suspect]
     Active Substance: TEDUGLUTIDE
     Indication: SHORT-BOWEL SYNDROME
     Dosage: 0.600 MILLIGRAM, QD
     Route: 065
     Dates: start: 20210216
  7. TEDUGLUTIDE [Suspect]
     Active Substance: TEDUGLUTIDE
     Indication: SHORT-BOWEL SYNDROME
     Dosage: 0.600 MILLIGRAM, QD
     Route: 065
     Dates: start: 20210216
  8. LEVETIRACETAM. [Concomitant]
     Active Substance: LEVETIRACETAM
     Dosage: UNK
     Route: 065
     Dates: start: 20210421

REACTIONS (1)
  - Candida sepsis [Recovered/Resolved]

NARRATIVE: CASE EVENT DATE: 20210717
